FAERS Safety Report 23571123 (Version 1)
Quarter: 2024Q1

REPORT INFORMATION
  Report Type: Spontaneous
  Country: US (occurrence: US)
  Receive Date: 20240227
  Receipt Date: 20240227
  Transmission Date: 20240410
  Serious: Yes (Other)
  Sender: FDA-Public Use
  Company Number: US-009507513-2402USA008610

PATIENT
  Sex: Female

DRUGS (4)
  1. NOXAFIL [Suspect]
     Active Substance: POSACONAZOLE
     Indication: Aspergillus infection
     Dosage: 100 MILLIGRAM (1 TABLET), QD
     Route: 048
     Dates: start: 2005, end: 2009
  2. CANCIDAS [Suspect]
     Active Substance: CASPOFUNGIN ACETATE
     Route: 042
  3. ITRACONAZOLE [Suspect]
     Active Substance: ITRACONAZOLE
  4. POSACONAZOLE [Suspect]
     Active Substance: POSACONAZOLE

REACTIONS (5)
  - Anaphylactic reaction [Unknown]
  - Drug ineffective [Unknown]
  - Malabsorption [Recovered/Resolved]
  - Escherichia infection [Unknown]
  - Incorrect dose administered [Unknown]

NARRATIVE: CASE EVENT DATE: 20050101
